FAERS Safety Report 5369924-5 (Version None)
Quarter: 2007Q2

REPORT INFORMATION
  Report Type: 
  Country: None (occurrence: None)
  Receive Date: 20070621
  Receipt Date: 20070614
  Transmission Date: 20071010
  Serious: Yes (Hospitalization)
  Sender: FDA-Public Use
  Company Number: 2007-02867

PATIENT
  Age: 71 Year
  Sex: Female

DRUGS (2)
  1. CHLOROQUINE PHOSPHATE [Suspect]
     Indication: POLYARTHRITIS
     Dosage: 200 MG, DAILY
     Dates: start: 19950101, end: 20030101
  2. CHLOROQUINE PHOSPHATE [Suspect]
     Indication: RHEUMATOID ARTHRITIS
     Dosage: 200 MG, DAILY
     Dates: start: 19950101, end: 20030101

REACTIONS (1)
  - ATRIOVENTRICULAR BLOCK COMPLETE [None]
